FAERS Safety Report 19089174 (Version 3)
Quarter: 2021Q4

REPORT INFORMATION
  Report Type: Report from Study
  Country: KE (occurrence: KE)
  Receive Date: 20210403
  Receipt Date: 20211230
  Transmission Date: 20220303
  Serious: Yes (Other)
  Sender: FDA-Public Use
  Company Number: KE-CIPLA LTD.-2021KE02461

PATIENT

DRUGS (5)
  1. LOPINAVIR\RITONAVIR [Suspect]
     Active Substance: LOPINAVIR\RITONAVIR
     Indication: HIV infection
     Dosage: 1 DOSAGE FORM, BID (80MG/20MG TWICE DAILY)
     Route: 048
     Dates: start: 20170223
  2. LOPINAVIR\RITONAVIR [Suspect]
     Active Substance: LOPINAVIR\RITONAVIR
     Dosage: 3 DOSAGE FORM, BID (120MG/30MG BID)
     Route: 048
     Dates: end: 20180716
  3. ABACAVIR\LAMIVUDINE [Suspect]
     Active Substance: ABACAVIR\LAMIVUDINE
     Indication: HIV infection
     Dosage: 0.5 DOSAGE FORM, BID (60MG/30MG BID)
     Route: 048
     Dates: start: 20170223
  4. ABACAVIR\LAMIVUDINE [Suspect]
     Active Substance: ABACAVIR\LAMIVUDINE
     Dosage: 1.5 DOSAGE FORM, BID (90MG/45MG BID)
     Route: 048
     Dates: end: 20180716
  5. COTRIMOXAZOLE [Concomitant]
     Active Substance: SULFAMETHOXAZOLE\TRIMETHOPRIM
     Indication: Prophylaxis
     Dosage: UNK
     Route: 065
     Dates: start: 20170126

REACTIONS (4)
  - Pulmonary tuberculosis [Recovered/Resolved]
  - Respiratory tract infection [Recovered/Resolved]
  - Enteritis [Recovered/Resolved]
  - Lymphadenopathy [Recovered/Resolved]

NARRATIVE: CASE EVENT DATE: 20170101
